FAERS Safety Report 15417934 (Version 1)
Quarter: 2018Q3

REPORT INFORMATION
  Report Type: Other
  Country: US (occurrence: US)
  Receive Date: 20180924
  Receipt Date: 20180924
  Transmission Date: 20181010
  Serious: Yes (Life-Threatening, Hospitalization)
  Sender: FDA-Public Use
  Company Number: US-SAPTALIS PHARMACEUTICALS LLC-2055253

PATIENT
  Age: 65 Year
  Sex: Female

DRUGS (4)
  1. HYDRALAZINE [Concomitant]
     Active Substance: HYDRALAZINE HYDROCHLORIDE
     Route: 065
  2. CLONIDINE. [Concomitant]
     Active Substance: CLONIDINE
     Route: 065
  3. FENTANYL. [Suspect]
     Active Substance: FENTANYL
     Route: 065
  4. LORAZEPAM. [Suspect]
     Active Substance: LORAZEPAM
     Indication: VENOM POISONING
     Route: 065

REACTIONS (7)
  - Encephalopathy [Recovering/Resolving]
  - Respiratory acidosis [Recovering/Resolving]
  - Hypokalaemia [Recovering/Resolving]
  - Hypoxia [Recovering/Resolving]
  - Rhabdomyolysis [Recovering/Resolving]
  - Hyponatraemia [Recovering/Resolving]
  - Product use in unapproved indication [Unknown]
